FAERS Safety Report 10245952 (Version 1)
Quarter: 2014Q2

REPORT INFORMATION
  Report Type: Spontaneous
  Country: US (occurrence: None)
  Receive Date: 20140616
  Receipt Date: 20140616
  Transmission Date: 20141212
  Serious: Yes (Hospitalization, Disabling)
  Sender: FDA-Public Use
  Company Number: None

PATIENT
  Sex: Male
  Weight: 95.26 kg

DRUGS (4)
  1. CLELLARIL-FROM OF THORAZINE MYLAN (304) (304) -599-2595/CASE-ID 20151017232 [Suspect]
     Indication: SCHIZOPHRENIA
     Route: 048
     Dates: start: 2001, end: 2001
  2. METFORMIN [Concomitant]
  3. SAPHRIS [Concomitant]
  4. BENZTROPINE [Concomitant]

REACTIONS (3)
  - Painful erection [None]
  - Erection increased [None]
  - Erectile dysfunction [None]
